FAERS Safety Report 16595961 (Version 1)
Quarter: 2019Q3

REPORT INFORMATION
  Report Type: Spontaneous
  Country: JP (occurrence: JP)
  Receive Date: 20190719
  Receipt Date: 20190719
  Transmission Date: 20191004
  Serious: Yes (Death, Other)
  Sender: FDA-Public Use
  Company Number: JP-ACTELION-A-CH2019-192926

PATIENT
  Age: 12 Year
  Sex: Female
  Weight: 24.9 kg

DRUGS (7)
  1. OXYGEN. [Concomitant]
     Active Substance: OXYGEN
  2. DOBUTAMINE [Concomitant]
     Active Substance: DOBUTAMINE HYDROCHLORIDE
     Dosage: 3 MCG/KG/MIN
  3. BOSENTAN. [Suspect]
     Active Substance: BOSENTAN
     Indication: PULMONARY HYPERTENSION
     Dosage: 5.0 MG/KG, QD
     Route: 048
  4. BERAPROST [Concomitant]
     Active Substance: BERAPROST
  5. EPOPROSTENOL SODIUM. [Suspect]
     Active Substance: EPOPROSTENOL SODIUM
     Indication: PULMONARY HYPERTENSION
     Dosage: 70 NG/KG, PER MIN
     Route: 042
  6. SILDENAFIL. [Concomitant]
     Active Substance: SILDENAFIL
     Dosage: 1.2 MG/KG, QD
  7. OLPRINONE [Concomitant]
     Active Substance: OLPRINONE HYDROCHLORIDE
     Dosage: 0.25 MCG/KG/MIN

REACTIONS (13)
  - Pulmonary alveolar haemorrhage [Fatal]
  - Pulmonary oedema [Fatal]
  - Transplant failure [Fatal]
  - Hypoxia [Fatal]
  - Removal of transplanted organ [Unknown]
  - Lung transplant [Unknown]
  - Thrombocytopenia [Unknown]
  - Pulmonary hypertension [Unknown]
  - Ventilation perfusion mismatch [Fatal]
  - Pancytopenia [Unknown]
  - Right ventricular failure [Unknown]
  - Concomitant disease progression [Unknown]
  - Graft haemorrhage [Fatal]
